FAERS Safety Report 4432609-3 (Version None)
Quarter: 2004Q3

REPORT INFORMATION
  Report Type: 
  Country: None (occurrence: None)
  Receive Date: 20040823
  Receipt Date: 20040325
  Transmission Date: 20050211
  Serious: Yes (Death, Hospitalization)
  Sender: FDA-Public Use
  Company Number: RENA-11148

PATIENT
  Age: 78 Year
  Sex: Male

DRUGS (11)
  1. RENAGEL [Suspect]
     Indication: HYPERPHOSPHATAEMIA
     Dosage: 4 G DAILY PO
     Route: 048
     Dates: start: 20030409, end: 20040316
  2. ATORVASTATIN [Concomitant]
  3. ACETYLSALICYLIC ACID [Concomitant]
  4. DOMPERIDONE [Concomitant]
  5. LANSOPRAZOLE [Concomitant]
  6. LACTULOSE [Concomitant]
  7. EPREX [Concomitant]
  8. INSULIN [Concomitant]
  9. CEFAZOLIN [Concomitant]
  10. CEFTRIAXONE [Concomitant]
  11. CLINDAMYCIN [Concomitant]

REACTIONS (12)
  - ACUTE MYOCARDIAL INFARCTION [None]
  - CARDIOGENIC SHOCK [None]
  - CONFUSIONAL STATE [None]
  - DIZZINESS [None]
  - DRY MOUTH [None]
  - DYSPHAGIA [None]
  - FOREIGN BODY TRAUMA [None]
  - HYPOTENSION [None]
  - ISCHAEMIA [None]
  - LEG AMPUTATION [None]
  - RESPIRATORY DISTRESS [None]
  - TREATMENT NONCOMPLIANCE [None]
